FAERS Safety Report 17305061 (Version 1)
Quarter: 2020Q1

REPORT INFORMATION
  Report Type: Report from Study
  Country: DE (occurrence: DE)
  Receive Date: 20200122
  Receipt Date: 20200122
  Transmission Date: 20200409
  Serious: Yes (Congenital Anomaly, Other)
  Sender: FDA-Public Use
  Company Number: DE-ASTRAZENECA-2019SF92226

PATIENT
  Sex: Male
  Weight: 3.9 kg

DRUGS (6)
  1. DICLOFENAC [Suspect]
     Active Substance: DICLOFENAC
     Indication: PAIN
     Dosage: AS NEEDED
     Route: 064
  2. LEVOTHYROXINE. [Suspect]
     Active Substance: LEVOTHYROXINE
     Route: 064
  3. LYNESTRENOL [Suspect]
     Active Substance: LYNESTRENOL
     Route: 064
  4. IBUPROFEN. [Suspect]
     Active Substance: IBUPROFEN
     Route: 064
  5. PARACETAMOL [Suspect]
     Active Substance: ACETAMINOPHEN
     Route: 064
  6. OMEPRAZOLE. [Suspect]
     Active Substance: OMEPRAZOLE
     Route: 064

REACTIONS (6)
  - Pupils unequal [Unknown]
  - Cerebral atrophy [Unknown]
  - Atrial septal defect [Unknown]
  - Splenomegaly [Unknown]
  - Microcephaly [Unknown]
  - Pyloric stenosis [Unknown]
